FAERS Safety Report 24608676 (Version 3)
Quarter: 2024Q4

REPORT INFORMATION
  Report Type: Spontaneous
  Country: US (occurrence: US)
  Receive Date: 20241112
  Receipt Date: 20241210
  Transmission Date: 20250115
  Serious: Yes (Hospitalization, Other)
  Sender: INCYTE
  Company Number: US-INCYTE CORPORATION-2024IN011605

PATIENT

DRUGS (1)
  1. JAKAFI [Suspect]
     Active Substance: RUXOLITINIB
     Indication: Myelofibrosis
     Dosage: 20 MILLIGRAM, BID
     Route: 048
     Dates: start: 2015

REACTIONS (4)
  - Pain [Unknown]
  - Blood pressure decreased [Unknown]
  - Tachycardia [Unknown]
  - Hypoxia [Unknown]

NARRATIVE: CASE EVENT DATE: 20241113
